FAERS Safety Report 23123360 (Version 1)
Quarter: 2023Q4

REPORT INFORMATION
  Report Type: Spontaneous
  Country: US (occurrence: US)
  Receive Date: 20231030
  Receipt Date: 20231030
  Transmission Date: 20240109
  Serious: No
  Sender: FDA-Public Use
  Company Number: US-drreddys-SPO/USA/23/0177116

PATIENT
  Age: 70 Year
  Sex: Male

DRUGS (4)
  1. DOCETAXEL [Suspect]
     Active Substance: DOCETAXEL
     Indication: Transitional cell carcinoma
     Dosage: WEEKLY
     Route: 043
  2. GEMCITABINE [Suspect]
     Active Substance: GEMCITABINE
     Indication: Transitional cell carcinoma
     Dosage: WEEKLY
     Route: 043
  3. GEMCITABINE [Suspect]
     Active Substance: GEMCITABINE
     Indication: Transitional cell carcinoma
  4. CISPLATIN [Suspect]
     Active Substance: CISPLATIN
     Indication: Transitional cell carcinoma

REACTIONS (4)
  - Gastrooesophageal reflux disease [Unknown]
  - Constipation [Unknown]
  - Nausea [Unknown]
  - Fatigue [Unknown]
